FAERS Safety Report 6438613-8 (Version None)
Quarter: 2009Q4

REPORT INFORMATION
  Report Type: 
  Country: None (occurrence: None)
  Receive Date: 20091110
  Receipt Date: 20091103
  Transmission Date: 20100525
  Serious: Yes (Life-Threatening, Hospitalization, Other)
  Sender: FDA-Public Use
  Company Number: TPA2009A03571

PATIENT
  Age: 41 Year
  Sex: Female
  Weight: 54.4316 kg

DRUGS (3)
  1. KAPIDEX [Suspect]
     Indication: GASTROOESOPHAGEAL REFLUX DISEASE
     Dosage: 60 MG, ONCE, PER ORAL
     Route: 048
     Dates: start: 20091030, end: 20091030
  2. MULTIVITAMIN (MULTIVITAMINS, PLAIN) [Concomitant]
  3. NECON (ETHINYLESTRADIOL, NORETHISTERONE) [Concomitant]

REACTIONS (6)
  - ANAPHYLACTIC SHOCK [None]
  - BLOOD POTASSIUM DECREASED [None]
  - FALL [None]
  - PLEURAL EFFUSION [None]
  - RESPIRATORY ARREST [None]
  - WHITE BLOOD CELL COUNT INCREASED [None]
